FAERS Safety Report 14735598 (Version 2)
Quarter: 2018Q2

REPORT INFORMATION
  Report Type: Spontaneous
  Country: US (occurrence: US)
  Receive Date: 20180409
  Receipt Date: 20180430
  Transmission Date: 20180711
  Serious: Yes (Death, Hospitalization)
  Sender: FDA-Public Use
  Company Number: US-SA-2018SA095736

PATIENT
  Sex: Male

DRUGS (3)
  1. REPATHA [Suspect]
     Active Substance: EVOLOCUMAB
     Dosage: TWICE MONTHLY FREQUENCY
     Route: 065
     Dates: start: 20180226, end: 20180328
  2. PRALUENT [Suspect]
     Active Substance: ALIROCUMAB
     Dosage: FREQUENCY TWICE/MONTH
     Route: 058
     Dates: start: 20180226, end: 20180328
  3. ALIROCUMAB PREFILLED PEN [Suspect]
     Active Substance: ALIROCUMAB
     Dosage: TWICE MONTHLY FREQUENCY
     Dates: start: 20180226, end: 20180328

REACTIONS (2)
  - Stevens-Johnson syndrome [Fatal]
  - Skin exfoliation [Fatal]

NARRATIVE: CASE EVENT DATE: 201803
